FAERS Safety Report 8812716 (Version 1)
Quarter: 2012Q4

REPORT INFORMATION
  Report Type: Report from Study
  Country: US (occurrence: US)
  Receive Date: 20120927
  Receipt Date: 20120927
  Transmission Date: 20130627
  Serious: Yes (Hospitalization)
  Sender: FDA-Public Use
  Company Number: US-TEVA-360386USA

PATIENT
  Sex: Female
  Weight: 59.41 kg

DRUGS (21)
  1. TREANDA [Suspect]
     Indication: MULTIPLE MYELOMA
     Route: 042
     Dates: start: 20120227, end: 20120814
  2. VELCADE [Suspect]
     Indication: MULTIPLE MYELOMA
     Route: 042
     Dates: start: 20120227, end: 20120814
  3. DEXAMETHASONE [Suspect]
     Indication: MULTIPLE MYELOMA
     Route: 042
     Dates: start: 20120227, end: 20120814
  4. LOSARTAN POTASSIUM W/HYDROCHLOROTHIAZIDE [Concomitant]
     Dates: start: 201112
  5. AMIODARONE [Concomitant]
     Dates: start: 2001
  6. ESTRADIOL [Concomitant]
  7. OMEPRAZOLE [Concomitant]
  8. LASIX [Concomitant]
  9. HYDROCODONE [Concomitant]
  10. COLESTYRAMINE [Concomitant]
  11. ACYCLOVIR [Concomitant]
  12. STOOL SOFTENER [Concomitant]
     Dates: start: 201207
  13. MULTIVITAMIN [Concomitant]
     Dates: start: 2005
  14. FISH OIL [Concomitant]
     Dates: start: 2005
  15. VITAMIN D3 [Concomitant]
     Dates: start: 2005
  16. CALCIUM [Concomitant]
  17. HYDROCHLOROTHIAZIDE [Concomitant]
     Dates: start: 201112
  18. KLOR-CON [Concomitant]
     Dates: start: 20120306
  19. DIGOXIN [Concomitant]
  20. LEVAQUIN [Concomitant]
  21. AMBIEN [Concomitant]

REACTIONS (1)
  - Pyrexia [Unknown]
